FAERS Safety Report 7392557-6 (Version None)
Quarter: 2011Q1

REPORT INFORMATION
  Report Type: 
  Country: None (occurrence: None)
  Receive Date: 20110330
  Receipt Date: 20110330
  Transmission Date: 20110831
  Serious: Yes (Hospitalization)
  Sender: FDA-Public Use
  Company Number: None

PATIENT
  Sex: Male
  Weight: 108.3 kg

DRUGS (4)
  1. METHOTREXATE [Suspect]
     Dosage: 230 MG
     Dates: end: 20110311
  2. VINCRISTINE SULFATE [Suspect]
     Dosage: 2 MG
     Dates: end: 20110312
  3. ELSPAR [Suspect]
     Dosage: 52900 MG
     Dates: end: 20110312
  4. DEXAMETHASONE [Suspect]
     Dosage: 56 MG
     Dates: end: 20110314

REACTIONS (3)
  - ARTHRITIS BACTERIAL [None]
  - STAPHYLOCOCCUS TEST POSITIVE [None]
  - NEUTROPENIA [None]
